FAERS Safety Report 23930589 (Version 2)
Quarter: 2025Q3

REPORT INFORMATION
  Report Type: Report from Study
  Country: US (occurrence: US)
  Receive Date: 20240603
  Receipt Date: 20250927
  Transmission Date: 20251021
  Serious: Yes (Other)
  Sender: ABBVIE
  Company Number: US-ABBVIE-5706755

PATIENT
  Age: 65 Year
  Sex: Female

DRUGS (1)
  1. SKYRIZI [Suspect]
     Active Substance: RISANKIZUMAB-RZAA
     Indication: Psoriasis
     Route: 058
     Dates: start: 20240302

REACTIONS (6)
  - Pulmonary fibrosis [Unknown]
  - COVID-19 [Recovering/Resolving]
  - Eye irritation [Unknown]
  - Pneumonitis [Unknown]
  - Carditis [Unknown]
  - Illness [Unknown]

NARRATIVE: CASE EVENT DATE: 20240101
